FAERS Safety Report 4663173-1 (Version None)
Quarter: 2005Q2

REPORT INFORMATION
  Report Type: 
  Country: None (occurrence: None)
  Receive Date: 20050513
  Receipt Date: 20050502
  Transmission Date: 20051028
  Serious: Yes (Hospitalization, Other)
  Sender: FDA-Public Use
  Company Number: 2005070330

PATIENT
  Age: 66 Year
  Sex: Male
  Weight: 106.5953 kg

DRUGS (10)
  1. BEXTRA [Suspect]
     Indication: ARTHRITIS
     Dosage: 10 MG (10 MG, 1 IN1 D), ORAL
     Route: 048
     Dates: start: 20030101, end: 20040501
  2. ASPIRIN [Concomitant]
  3. ALLOPURINOL [Concomitant]
  4. RANITIDINE HYDROCHLORIDE [Concomitant]
  5. SIMVASTATIN [Concomitant]
  6. LISINOPRIL [Concomitant]
  7. FUROSEMIDE [Concomitant]
  8. PIOGLITAZONE HCL [Concomitant]
  9. GLIPIZIDE [Concomitant]
  10. QUININE SULFATE [Concomitant]

REACTIONS (5)
  - BLINDNESS UNILATERAL [None]
  - CEREBROVASCULAR ACCIDENT [None]
  - RENAL DISORDER [None]
  - ROAD TRAFFIC ACCIDENT [None]
  - TRANSIENT ISCHAEMIC ATTACK [None]
